FAERS Safety Report 16833074 (Version 2)
Quarter: 2019Q4

REPORT INFORMATION
  Report Type: Spontaneous
  Country: US (occurrence: US)
  Receive Date: 20190920
  Receipt Date: 20191002
  Transmission Date: 20200122
  Serious: Yes (Hospitalization)
  Sender: FDA-Public Use
  Company Number: US-ABBVIE-19P-163-2927122-00

PATIENT
  Age: 71 Year
  Sex: Male

DRUGS (2)
  1. VALPROIC ACID. [Suspect]
     Active Substance: VALPROIC ACID
     Indication: MENTAL STATUS CHANGES
     Route: 065
  2. QUETIAPINE FUMARATE. [Suspect]
     Active Substance: QUETIAPINE FUMARATE
     Indication: MENTAL STATUS CHANGES
     Route: 065

REACTIONS (4)
  - Catatonia [Recovering/Resolving]
  - Bedridden [Recovering/Resolving]
  - Lethargy [Recovering/Resolving]
  - Speech disorder [Recovering/Resolving]
